FAERS Safety Report 7355125-8 (Version None)
Quarter: 2011Q1

REPORT INFORMATION
  Report Type: 
  Country: None (occurrence: None)
  Receive Date: 20110316
  Receipt Date: 20110303
  Transmission Date: 20110831
  Serious: Yes (Other)
  Sender: FDA-Public Use
  Company Number: US-ELI_LILLY_AND_COMPANY-US201103002385

PATIENT
  Age: 77 Year
  Sex: Male

DRUGS (2)
  1. EFFIENT [Suspect]
     Indication: CORONARY ARTERIAL STENT INSERTION
     Dosage: 10 MG, DAILY (1/D)
  2. EFFIENT [Suspect]
     Dosage: 10 MG, DAILY (1/D)

REACTIONS (4)
  - IN-STENT ARTERIAL RESTENOSIS [None]
  - CHEST DISCOMFORT [None]
  - NAUSEA [None]
  - LETHARGY [None]
